FAERS Safety Report 8582906-5 (Version None)
Quarter: 2012Q3

REPORT INFORMATION
  Report Type: 
  Country: None (occurrence: None)
  Receive Date: 20120727
  Receipt Date: 20120711
  Transmission Date: 20120928
  Serious: Yes (Death)
  Sender: FDA-Public Use
  Company Number: 2012JP004454

PATIENT
  Age: 73 Year
  Sex: Male
  Weight: 58 kg

DRUGS (5)
  1. CELECOXIB [Concomitant]
  2. RHEUMATREX [Suspect]
     Indication: RHEUMATOID ARTHRITIS
     Dosage: ORAL
     Route: 048
     Dates: end: 20090128
  3. PROGRAF [Suspect]
     Indication: RHEUMATOID ARTHRITIS
     Dosage: 1 MG, UID/QD, ORAL : 1.5 MG, UID/QD, ORAL
     Route: 048
     Dates: start: 20080611, end: 20081118
  4. PROGRAF [Suspect]
     Indication: RHEUMATOID ARTHRITIS
     Dosage: 1 MG, UID/QD, ORAL : 1.5 MG, UID/QD, ORAL
     Route: 048
     Dates: start: 20081119
  5. PREDNISOLONE [Suspect]
     Indication: RHEUMATOID ARTHRITIS
     Dosage: 25 MG, BID, ORAL
     Route: 048

REACTIONS (2)
  - PNEUMOCYSTIS JIROVECI PNEUMONIA [None]
  - INTENTIONAL DRUG MISUSE [None]
